FAERS Safety Report 17726687 (Version 2)
Quarter: 2020Q2

REPORT INFORMATION
  Report Type: Spontaneous
  Country: RO (occurrence: RO)
  Receive Date: 20200430
  Receipt Date: 20200605
  Transmission Date: 20200714
  Serious: Yes (Disabling, Other)
  Sender: FDA-Public Use
  Company Number: RO-SUN PHARMACEUTICAL INDUSTRIES LTD-2020RR-245572

PATIENT
  Age: 61 Year
  Sex: Male

DRUGS (12)
  1. TRAZODONE [Suspect]
     Active Substance: TRAZODONE HYDROCHLORIDE
     Indication: MAJOR DEPRESSION
  2. TRAZODONE [Suspect]
     Active Substance: TRAZODONE HYDROCHLORIDE
     Indication: PERSONALITY CHANGE
  3. DONEPEZIL. [Suspect]
     Active Substance: DONEPEZIL
     Indication: MAJOR DEPRESSION
  4. DONEPEZIL. [Suspect]
     Active Substance: DONEPEZIL
     Indication: DEMENTIA
     Dosage: 10 MILLIGRAM, DAILY
     Route: 065
     Dates: start: 2018
  5. TRAZODONE [Suspect]
     Active Substance: TRAZODONE HYDROCHLORIDE
     Indication: DEMENTIA
     Dosage: 100 MILLIGRAM, DAILY
     Route: 065
  6. ESCITALOPRAM [Concomitant]
     Active Substance: ESCITALOPRAM OXALATE
     Indication: MAJOR DEPRESSION
     Dosage: 10 MILLIGRAM, DAILY
     Route: 065
  7. CLONAZEPAM. [Concomitant]
     Active Substance: CLONAZEPAM
     Indication: MAJOR DEPRESSION
     Dosage: 1 MILLIGRAM, DAILY
     Route: 065
  8. DONEPEZIL. [Suspect]
     Active Substance: DONEPEZIL
     Indication: PERSONALITY CHANGE
  9. ARIPIPRAZOLE. [Suspect]
     Active Substance: ARIPIPRAZOLE
     Indication: ABNORMAL BEHAVIOUR
     Dosage: 10 MILLIGRAM, DAILY
     Route: 048
  10. MEMANTINE. [Suspect]
     Active Substance: MEMANTINE
     Indication: MAJOR DEPRESSION
  11. MEMANTINE. [Suspect]
     Active Substance: MEMANTINE
     Indication: PERSONALITY CHANGE
  12. MEMANTINE. [Suspect]
     Active Substance: MEMANTINE
     Indication: DEMENTIA
     Dosage: 20 MILLIGRAM, DAILY
     Route: 065
     Dates: start: 2018

REACTIONS (3)
  - Disinhibition [Unknown]
  - Treatment failure [Unknown]
  - Loss of personal independence in daily activities [Unknown]
